FAERS Safety Report 18435354 (Version 2)
Quarter: 2020Q4

REPORT INFORMATION
  Report Type: Other
  Country: JP (occurrence: JP)
  Receive Date: 20201027
  Receipt Date: 20201110
  Transmission Date: 20210114
  Serious: Yes (Hospitalization)
  Sender: FDA-Public Use
  Company Number: JP-ROCHE-2702479

PATIENT
  Age: 66 Year
  Sex: Female
  Weight: 48 kg

DRUGS (6)
  1. METHOTREXATE. [Concomitant]
     Active Substance: METHOTREXATE
     Indication: RHEUMATOID ARTHRITIS
     Route: 048
  2. SULFAMETHOXAZOLE/TRIMETHOPRIM [Concomitant]
     Active Substance: SULFAMETHOXAZOLE\TRIMETHOPRIM
     Dosage: DOSAGE IS UNCERTAIN.
     Route: 048
  3. CELECOXIB. [Concomitant]
     Active Substance: CELECOXIB
     Dosage: DOSAGE IS UNCERTAIN.
     Route: 048
  4. FOLIC ACID. [Concomitant]
     Active Substance: FOLIC ACID
     Dosage: DOSAGE IS UNCERTAIN.
     Route: 048
  5. ACTEMRA [Suspect]
     Active Substance: TOCILIZUMAB
     Indication: RHEUMATOID ARTHRITIS
     Route: 042
     Dates: start: 201807
  6. OMEPRAZOLE. [Concomitant]
     Active Substance: OMEPRAZOLE
     Dosage: DOSAGE IS UNCERTAIN.
     Route: 048

REACTIONS (1)
  - Immune thrombocytopenia [Recovering/Resolving]
